FAERS Safety Report 5083067-X (Version None)
Quarter: 2006Q3

REPORT INFORMATION
  Report Type: 
  Country: None (occurrence: None)
  Receive Date: 20060814
  Receipt Date: 20060804
  Transmission Date: 20061208
  Serious: Yes (Death)
  Sender: FDA-Public Use
  Company Number: 2006096594

PATIENT
  Age: 57 Year
  Sex: Female

DRUGS (1)
  1. NEURONTIN [Suspect]
     Indication: ISCHAEMIA
     Dates: start: 20040101

REACTIONS (1)
  - MULTI-ORGAN FAILURE [None]
